FAERS Safety Report 23779400 (Version 1)
Quarter: 2024Q2

REPORT INFORMATION
  Report Type: Spontaneous
  Country: US (occurrence: US)
  Receive Date: 20240424
  Receipt Date: 20240424
  Transmission Date: 20240716
  Serious: No
  Sender: FDA-Public Use
  Company Number: US-SA-SAC20240422000036

PATIENT
  Sex: Female
  Weight: 65.31 kg

DRUGS (4)
  1. DUPIXENT [Suspect]
     Active Substance: DUPILUMAB
     Indication: Dermatitis atopic
     Dosage: 1 DF, QOW
     Route: 058
  2. FOLIC ACID [Concomitant]
     Active Substance: FOLIC ACID
     Dosage: UNK
  3. PREBIOTICS NOS;PROBIOTICS NOS [Concomitant]
     Dosage: UNK
  4. TALTZ [Concomitant]
     Active Substance: IXEKIZUMAB
     Dosage: UNK

REACTIONS (1)
  - Feeling abnormal [Unknown]

NARRATIVE: CASE EVENT DATE: 20240101
